FAERS Safety Report 5431104-2 (Version None)
Quarter: 2007Q3

REPORT INFORMATION
  Report Type: 
  Country: None (occurrence: None)
  Receive Date: 20070830
  Receipt Date: 20070214
  Transmission Date: 20080115
  Serious: No
  Sender: FDA-Public Use
  Company Number: A0639569A

PATIENT
  Sex: Female

DRUGS (2)
  1. WELLBUTRIN XL [Suspect]
     Indication: DEPRESSION
     Dosage: 150MG UNKNOWN
     Route: 048
  2. PAIN MEDICATION [Concomitant]

REACTIONS (3)
  - DRUG DISPENSING ERROR [None]
  - FEELING ABNORMAL [None]
  - THERAPEUTIC RESPONSE UNEXPECTED [None]
